FAERS Safety Report 15777743 (Version 1)
Quarter: 2018Q4

REPORT INFORMATION
  Report Type: Spontaneous
  Country: US (occurrence: US)
  Receive Date: 20181231
  Receipt Date: 20181231
  Transmission Date: 20190205
  Serious: Yes (Life-Threatening, Disabling)
  Sender: FDA-Public Use
  Company Number: None

PATIENT
  Age: 31 Year
  Sex: Female
  Weight: 85.5 kg

DRUGS (7)
  1. PREDNISONE. [Concomitant]
     Active Substance: PREDNISONE
  2. ACETAMINOPHEN. [Concomitant]
     Active Substance: ACETAMINOPHEN
  3. IBUPROFEN. [Concomitant]
     Active Substance: IBUPROFEN
  4. LEVOFLOXACIN 750MG TABLETS [Suspect]
     Active Substance: LEVOFLOXACIN
     Indication: BRONCHITIS
     Dosage: ?          QUANTITY:1 TABLET(S);?
     Route: 048
     Dates: start: 20181220, end: 20181223
  5. CALCIUM WITH VITAMIN D [Concomitant]
     Active Substance: CALCIUM\VITAMIN D
  6. GAMGUARD [Concomitant]
  7. ONE A DAY DAILY WOMEN^S VITAMIN [Concomitant]

REACTIONS (2)
  - Myasthenia gravis [None]
  - Polymyositis [None]

NARRATIVE: CASE EVENT DATE: 20181220
